FAERS Safety Report 5020637-9 (Version None)
Quarter: 2006Q2

REPORT INFORMATION
  Report Type: 
  Country: None (occurrence: None)
  Receive Date: 20060602
  Receipt Date: 20060522
  Transmission Date: 20061013
  Serious: Yes (Other)
  Sender: FDA-Public Use
  Company Number: 225412

PATIENT
  Age: 38 Year
  Sex: Female
  Weight: 56.7 kg

DRUGS (5)
  1. XOLAIR [Suspect]
     Indication: ASTHMA
     Dosage: 150 MG, 1/MONTH, SUBCUTANEOUS
     Route: 058
     Dates: start: 20060308
  2. PROVENTIL (ALBUTEROL/ALBUTEROL SULFATE) [Concomitant]
  3. NEURONTIN [Concomitant]
  4. GAS-X (SIMETHICONE) [Concomitant]
  5. SINGULAIR [Concomitant]

REACTIONS (2)
  - CHEST DISCOMFORT [None]
  - CHEST PAIN [None]
